FAERS Safety Report 6558987-7 (Version None)
Quarter: 2010Q1

REPORT INFORMATION
  Report Type: 
  Country: None (occurrence: None)
  Receive Date: 20100129
  Receipt Date: 20100122
  Transmission Date: 20100710
  Serious: Yes (Other)
  Sender: FDA-Public Use
  Company Number: PHEH2010US01287

PATIENT
  Sex: Male

DRUGS (10)
  1. EXJADE [Suspect]
     Indication: MYELODYSPLASTIC SYNDROME
     Dosage: 1875 MG DAILY
  2. DEXAMETHASONE [Concomitant]
  3. PRILOSEC [Concomitant]
  4. TRIAMTERENE AND HYDROCHLOROTHIAZID ^HARRIS^ [Concomitant]
  5. AMLODIPINE [Concomitant]
  6. FOLIC ACID [Concomitant]
  7. LANTUS [Concomitant]
  8. MULTIVITAMIN ^LAPPE^ [Concomitant]
  9. PRAVACHOL [Concomitant]
  10. TERAZOSIN HCL [Concomitant]

REACTIONS (1)
  - CONDITION AGGRAVATED [None]
